FAERS Safety Report 18506572 (Version 1)
Quarter: 2020Q4

REPORT INFORMATION
  Report Type: Spontaneous
  Country: US (occurrence: US)
  Receive Date: 20201113
  Receipt Date: 20201113
  Transmission Date: 20210114
  Serious: No
  Sender: FDA-Public Use
  Company Number: None

PATIENT
  Age: 10 Year
  Sex: Female

DRUGS (3)
  1. RESCUE INHALER [Concomitant]
     Active Substance: UNSPECIFIED INGREDIENT
  2. EPINEPHRINE INJECTION [Suspect]
     Active Substance: EPINEPHRINE
     Indication: PHARYNGEAL SWELLING
     Dosage: ?          QUANTITY:1 INJECTION(S);?
     Route: 030
     Dates: start: 20201113
  3. EPI-PEN TWIN PACK [Concomitant]

REACTIONS (3)
  - Device issue [None]
  - Injection site pain [None]
  - Needle issue [None]

NARRATIVE: CASE EVENT DATE: 20201113
